FAERS Safety Report 16830931 (Version 1)
Quarter: 2019Q3

REPORT INFORMATION
  Report Type: Spontaneous
  Country: CN (occurrence: CN)
  Receive Date: 20190920
  Receipt Date: 20190920
  Transmission Date: 20191005
  Serious: Yes (Other)
  Sender: FDA-Public Use
  Company Number: CN-BAXTER-2019BAX018282

PATIENT
  Age: 41 Year
  Sex: Female
  Weight: 42 kg

DRUGS (12)
  1. 0.9% SODIUM CHLORIDE INJECTION [Suspect]
     Active Substance: SODIUM CHLORIDE
     Dosage: 1 TO 2ND CHEMOTHERAPY WITH PHARMORUBICIN RD + NS
     Route: 041
  2. PHARMORUBICIN RD [Suspect]
     Active Substance: EPIRUBICIN
     Indication: BREAST CANCER FEMALE
     Dosage: 1 TO 2ND CHEMOTHERAPY WITH PHARMORUBICIN RD + NS
     Route: 041
  3. ENDOXAN [Suspect]
     Active Substance: CYCLOPHOSPHAMIDE
     Indication: BREAST CANCER FEMALE
     Dosage: 1 TO 2ND CHEMOTHERAPY WITH ENDOXAN + NS
     Route: 042
  4. PHARMORUBICIN RD [Suspect]
     Active Substance: EPIRUBICIN
     Dosage: THIRD CHEMOTHERAPY WITH PHARMORUBICIN RD + NS
     Route: 041
     Dates: start: 20190624, end: 20190624
  5. ENDOXAN [Suspect]
     Active Substance: CYCLOPHOSPHAMIDE
     Dosage: THIRD CHEMOTHERAPY WITH ENDOXAN + NS
     Route: 042
     Dates: start: 20190624, end: 20190624
  6. ENDOXAN [Suspect]
     Active Substance: CYCLOPHOSPHAMIDE
     Dosage: DOSE RE-INTRODUCED WITH ENDOXAN + NS
     Route: 042
  7. 0.9% SODIUM CHLORIDE INJECTION [Suspect]
     Active Substance: SODIUM CHLORIDE
     Dosage: THIRD CHEMOTHERAPY WITH PHARMORUBICIN RD + NS
     Route: 041
     Dates: start: 20190624, end: 20190624
  8. PHARMORUBICIN RD [Suspect]
     Active Substance: EPIRUBICIN
     Dosage: DOSE RE-INTRODUCED WITH PHARMORUBICIN RD + NS
     Route: 041
  9. 0.9% SODIUM CHLORIDE INJECTION [Suspect]
     Active Substance: SODIUM CHLORIDE
     Dosage: THIRD CHEMOTHERAPY WITH ENDOXAN + NS
     Route: 042
     Dates: start: 20190624, end: 20190624
  10. 0.9% SODIUM CHLORIDE INJECTION [Suspect]
     Active Substance: SODIUM CHLORIDE
     Indication: MEDICATION DILUTION
     Dosage: 1 TO 2ND CHEMOTHERAPY WITH ENDOXAN + NS
     Route: 042
  11. 0.9% SODIUM CHLORIDE INJECTION [Suspect]
     Active Substance: SODIUM CHLORIDE
     Dosage: DOSE RE-INTRODUCED WITH ENDOXAN + NS
     Route: 042
  12. 0.9% SODIUM CHLORIDE INJECTION [Suspect]
     Active Substance: SODIUM CHLORIDE
     Dosage: DOSE RE-INTRODUCED PHARMORUBICIN RD + NS
     Route: 041

REACTIONS (1)
  - Agranulocytosis [Recovered/Resolved]

NARRATIVE: CASE EVENT DATE: 20190702
